FAERS Safety Report 8726288 (Version 2)
Quarter: 2012Q4

REPORT INFORMATION
  Report Type: 
  Country: CA (occurrence: CA)
  Receive Date: 20120816
  Receipt Date: 20120925
  Transmission Date: 20130627
  Serious: Yes (Other)
  Sender: FDA-Public Use
  Company Number: PHHY2012CA062868

PATIENT
  Age: 90 Year
  Sex: Female

DRUGS (15)
  1. ACLASTA [Suspect]
     Indication: OSTEOPOROSIS
     Dosage: UNK
     Route: 042
     Dates: start: 20090601
  2. ACLASTA [Suspect]
     Dosage: UNK
     Route: 042
     Dates: start: 20100622
  3. ACLASTA [Suspect]
     Dosage: UNK
     Route: 042
     Dates: start: 20110728
  4. DIGOXIN [Concomitant]
  5. METOPROLOL [Concomitant]
  6. RAMIPRIL [Concomitant]
  7. FUROSEMIDE [Concomitant]
  8. ATORVASTATIN [Concomitant]
  9. WARFARIN [Concomitant]
  10. CALCIUM [Concomitant]
  11. VITAMIN D [Concomitant]
  12. VITAMIN B12 [Concomitant]
  13. TYLENOL [Concomitant]
     Indication: ARTHRITIS
  14. PENNSAID [Concomitant]
  15. VOLTAREN [Concomitant]
     Route: 061

REACTIONS (8)
  - Fall [Not Recovered/Not Resolved]
  - Blood creatinine increased [Not Recovered/Not Resolved]
  - Glomerular filtration rate decreased [Not Recovered/Not Resolved]
  - Haematocrit decreased [Not Recovered/Not Resolved]
  - Red blood cell count decreased [Not Recovered/Not Resolved]
  - Contusion [Not Recovered/Not Resolved]
  - Calcium ionised increased [Unknown]
  - Haemoglobin decreased [Not Recovered/Not Resolved]
